FAERS Safety Report 7226756-0 (Version None)
Quarter: 2011Q1

REPORT INFORMATION
  Report Type: 
  Country: None (occurrence: None)
  Receive Date: 20110114
  Receipt Date: 20110105
  Transmission Date: 20110831
  Serious: Yes (Hospitalization, Other)
  Sender: FDA-Public Use
  Company Number: FR-JNJFOC-20110100783

PATIENT
  Age: 32 Year
  Sex: Male

DRUGS (8)
  1. CLARITHROMYCIN [Suspect]
     Indication: BRONCHITIS
     Route: 048
  2. OLMETEC [Concomitant]
     Route: 065
  3. RAMIPRIL [Concomitant]
     Route: 065
  4. GLICLAZIDE [Suspect]
     Indication: DIABETES MELLITUS
     Route: 048
  5. PARACETAMOL [Concomitant]
     Route: 065
  6. CLINDAMYCIN [Suspect]
     Indication: ILL-DEFINED DISORDER
     Route: 065
  7. TAVANIC [Suspect]
     Indication: BRONCHITIS
     Route: 048
  8. AMOXICILLIN [Suspect]
     Indication: BRONCHITIS
     Route: 048

REACTIONS (5)
  - HEPATIC STEATOSIS [None]
  - DIABETES MELLITUS [None]
  - JAUNDICE [None]
  - HYPERBILIRUBINAEMIA [None]
  - HAEMOLYTIC ANAEMIA [None]
